FAERS Safety Report 10250862 (Version 1)
Quarter: 2014Q2

REPORT INFORMATION
  Report Type: Spontaneous
  Country: FR (occurrence: FR)
  Receive Date: 20140620
  Receipt Date: 20140620
  Transmission Date: 20141212
  Serious: Yes (Death)
  Sender: FDA-Public Use
  Company Number: FR-ELI_LILLY_AND_COMPANY-FR201406005480

PATIENT
  Sex: 0

DRUGS (2)
  1. GEMCITABINE HYDROCHLORIDE [Suspect]
     Indication: BILIARY NEOPLASM
     Dosage: 1000 MG/M2, OTHER
     Route: 042
  2. OXALIPLATIN [Suspect]
     Indication: BILIARY NEOPLASM
     Dosage: 100 MG/M2, OTHER
     Route: 042

REACTIONS (1)
  - Atypical pneumonia [Fatal]
